FAERS Safety Report 15043915 (Version 1)
Quarter: 2018Q2

REPORT INFORMATION
  Report Type: Spontaneous
  Country: JP (occurrence: JP)
  Receive Date: 20180621
  Receipt Date: 20180621
  Transmission Date: 20180711
  Serious: Yes (Hospitalization)
  Sender: FDA-Public Use
  Company Number: JP-009507513-1806JPN001253J

PATIENT
  Age: 100 Year
  Sex: Female

DRUGS (2)
  1. BELSOMRA [Suspect]
     Active Substance: SUVOREXANT
     Indication: INSOMNIA
     Dosage: 15 MG, QD
     Route: 048
  2. DEZOLAM [Concomitant]
     Active Substance: ETIZOLAM
     Dosage: UNK
     Route: 065

REACTIONS (2)
  - Restlessness [Unknown]
  - Inflammation [Unknown]

NARRATIVE: CASE EVENT DATE: 2018
